FAERS Safety Report 16347030 (Version 1)
Quarter: 2019Q2

REPORT INFORMATION
  Report Type: Spontaneous
  Country: US (occurrence: US)
  Receive Date: 20190523
  Receipt Date: 20190523
  Transmission Date: 20190711
  Serious: No
  Sender: FDA-Public Use
  Company Number: US-TARO-2018TAR00322

PATIENT
  Sex: Female

DRUGS (1)
  1. CLOTRIMAZOLE VAGINAL CREAM USP 2% 3 DAY [Suspect]
     Active Substance: CLOTRIMAZOLE
     Indication: FUNGAL INFECTION
     Dosage: UNK
     Route: 067

REACTIONS (3)
  - Vulvovaginal swelling [Unknown]
  - Application site pain [Unknown]
  - Fungal infection [Unknown]
